FAERS Safety Report 6758150-0 (Version None)
Quarter: 2010Q2

REPORT INFORMATION
  Report Type: 
  Country: None (occurrence: None)
  Receive Date: 20100603
  Receipt Date: 20100513
  Transmission Date: 20101027
  Serious: No
  Sender: FDA-Public Use
  Company Number: PHHY2010AT33081

PATIENT
  Age: 16 Year

DRUGS (1)
  1. BACLOFEN [Suspect]
     Indication: CEREBRAL PALSY
     Dosage: INTRATHECAL
     Route: 037

REACTIONS (1)
  - CEREBROSPINAL FISTULA [None]
